FAERS Safety Report 9624901 (Version 2)
Quarter: 2013Q4

REPORT INFORMATION
  Report Type: Report from Study
  Country: CA (occurrence: CA)
  Receive Date: 20131016
  Receipt Date: 20131016
  Transmission Date: 20140711
  Serious: Yes (Other)
  Sender: FDA-Public Use
  Company Number: CA-ROCHE-1239595

PATIENT
  Sex: Female
  Weight: 70 kg

DRUGS (9)
  1. ACTEMRA [Suspect]
     Indication: RHEUMATOID ARTHRITIS
     Route: 042
     Dates: start: 20101021
  2. PREDNISONE [Concomitant]
  3. METHOTREXATE [Concomitant]
  4. CELEBREX [Concomitant]
  5. WELLBUTRIN [Concomitant]
  6. AMITRIPTYLINE [Concomitant]
  7. HYDROCHLOROTHIAZIDE [Concomitant]
  8. PERCOCET [Concomitant]
  9. CODEINE [Concomitant]

REACTIONS (2)
  - Malaise [Unknown]
  - Foot operation [Unknown]
